FAERS Safety Report 19717834 (Version 1)
Quarter: 2021Q3

REPORT INFORMATION
  Report Type: Report from Study
  Country: GB (occurrence: GB)
  Receive Date: 20210819
  Receipt Date: 20210819
  Transmission Date: 20211014
  Serious: Yes (Hospitalization, Other)
  Sender: FDA-Public Use
  Company Number: NVSC2021GB079112

PATIENT
  Sex: Female

DRUGS (6)
  1. HYRIMOZ [Suspect]
     Active Substance: ADALIMUMAB-ADAZ
     Dosage: UNK(40MG/0.8ML), EOW
     Route: 058
  2. PREDNISOLONE. [Concomitant]
     Active Substance: PREDNISOLONE
     Indication: PRODUCT USED FOR UNKNOWN INDICATION
     Dosage: UNK
     Route: 065
  3. HYRIMOZ [Suspect]
     Active Substance: ADALIMUMAB-ADAZ
     Dosage: UNK(40MG/0.8ML), EOW
     Route: 058
  4. HYRIMOZ [Suspect]
     Active Substance: ADALIMUMAB-ADAZ
     Dosage: 40 MG, 4 WEEKS, FORTNIGHTLY
     Route: 058
  5. HYRIMOZ [Suspect]
     Active Substance: ADALIMUMAB-ADAZ
     Indication: CROHN^S DISEASE
     Dosage: 160 MG, WEEK 0
     Route: 058
     Dates: start: 20210308
  6. HYRIMOZ [Suspect]
     Active Substance: ADALIMUMAB-ADAZ
     Dosage: 80 MG,WEEK 2
     Route: 058

REACTIONS (14)
  - Hypotension [Unknown]
  - Swelling face [Unknown]
  - Peripheral swelling [Unknown]
  - Lower respiratory tract infection [Unknown]
  - Lethargy [Unknown]
  - Rash [Unknown]
  - Abdominal pain upper [Unknown]
  - Swelling [Unknown]
  - Illness [Unknown]
  - Mental disorder [Unknown]
  - Abdominal distension [Unknown]
  - Pharyngitis [Unknown]
  - Hypersomnia [Unknown]
  - Rash pruritic [Unknown]
